FAERS Safety Report 17656999 (Version 5)
Quarter: 2020Q2

REPORT INFORMATION
  Report Type: Report from Study
  Country: US (occurrence: US)
  Receive Date: 20200410
  Receipt Date: 20200625
  Transmission Date: 20200713
  Serious: Yes (Hospitalization, Other)
  Sender: FDA-Public Use
  Company Number: US-TAIHO ONCOLOGY  INC-EU-2020-00805

PATIENT
  Age: 78 Year
  Sex: Male

DRUGS (13)
  1. LONSURF [Suspect]
     Active Substance: TIPIRACIL HYDROCHLORIDE\TRIFLURIDINE
     Dosage: CYCLE NUMBER 2
     Route: 048
     Dates: start: 20191217
  2. LONSURF [Suspect]
     Active Substance: TIPIRACIL HYDROCHLORIDE\TRIFLURIDINE
     Dosage: CYCLE NUMBER 3 TO 5.
     Route: 048
     Dates: start: 20200120
  3. ATROPINE. [Concomitant]
     Active Substance: ATROPINE
  4. LONSURF [Suspect]
     Active Substance: TIPIRACIL HYDROCHLORIDE\TRIFLURIDINE
     Dosage: UNKNOWN CYCLE
     Route: 048
     Dates: start: 20200526, end: 202006
  5. OMEPRAZOLE. [Concomitant]
     Active Substance: OMEPRAZOLE
  6. FUROSEMIDE. [Concomitant]
     Active Substance: FUROSEMIDE
  7. MORPHINE [Concomitant]
     Active Substance: MORPHINE
  8. OFLOXACIN. [Concomitant]
     Active Substance: OFLOXACIN
  9. LONSURF [Suspect]
     Active Substance: TIPIRACIL HYDROCHLORIDE\TRIFLURIDINE
     Indication: COLON CANCER
     Dosage: CYCLE NUMBER 1
     Route: 048
     Dates: start: 20191116
  10. PREDNISOLONE. [Concomitant]
     Active Substance: PREDNISOLONE
  11. XARELTO [Concomitant]
     Active Substance: RIVAROXABAN
     Indication: PORTAL VEIN THROMBOSIS
  12. SPIRONOLACTONE. [Concomitant]
     Active Substance: SPIRONOLACTONE
  13. KETOROLAC [Concomitant]
     Active Substance: KETOROLAC TROMETHAMINE

REACTIONS (7)
  - Neutrophil count decreased [Recovered/Resolved]
  - Small intestinal obstruction [Recovered/Resolved]
  - Anaemia [Unknown]
  - Underdose [Unknown]
  - Pancytopenia [Recovering/Resolving]
  - Disease progression [Not Recovered/Not Resolved]
  - Incorrect dosage administered [Unknown]

NARRATIVE: CASE EVENT DATE: 20200106
